FAERS Safety Report 9012337 (Version 1)
Quarter: 2012Q4

REPORT INFORMATION
  Report Type: Spontaneous
  Country: IT (occurrence: None)
  Receive Date: 20121231
  Receipt Date: 20121231
  Transmission Date: 20130627
  Serious: Yes (Hospitalization)
  Sender: FDA-Public Use
  Company Number: 2012-22957

PATIENT
  Age: 31 Year
  Sex: Female

DRUGS (1)
  1. ALPRAZOLAM (UNKNOWN) [Suspect]
     Indication: DRUG USE FOR UNKNOWN INDICATION
     Dosage: 60 tablets, 30 mg in total, Oral
     Dates: start: 20121101, end: 20121101

REACTIONS (3)
  - Sopor [None]
  - Overdose [None]
  - Confusional state [None]
